FAERS Safety Report 24726303 (Version 1)
Quarter: 2024Q4

REPORT INFORMATION
  Report Type: Spontaneous
  Country: US (occurrence: None)
  Receive Date: 20241211
  Receipt Date: 20241211
  Transmission Date: 20250114
  Serious: Yes (Life-Threatening, Hospitalization)
  Sender: Public
  Company Number: None

PATIENT
  Age: 24 Year
  Sex: Male
  Weight: 87 kg

DRUGS (1)
  1. METHYLPREDNISOLONE [Suspect]
     Active Substance: METHYLPREDNISOLONE
     Indication: Upper respiratory tract infection
     Dosage: OTHER FREQUENCY : ONCE;?
     Route: 042
     Dates: start: 20230918, end: 20230918

REACTIONS (2)
  - Tachycardia [None]
  - Anaphylactic shock [None]

NARRATIVE: CASE EVENT DATE: 20230918
